FAERS Safety Report 8610576-6 (Version None)
Quarter: 2012Q3

REPORT INFORMATION
  Report Type: 
  Country: None (occurrence: None)
  Receive Date: 20120822
  Receipt Date: 20120817
  Transmission Date: 20120928
  Serious: Yes (Death, Hospitalization, Other)
  Sender: FDA-Public Use
  Company Number: US-JNJFOC-20120808808

PATIENT
  Sex: Male

DRUGS (12)
  1. CYCLOPHOSPHAMIDE [Suspect]
     Indication: MANTLE CELL LYMPHOMA
     Dosage: ON DAY 1
     Route: 065
  2. DOXORUBICIN HCL [Suspect]
     Indication: DIFFUSE LARGE B-CELL LYMPHOMA
     Dosage: ON DAY 1
     Route: 042
  3. CYCLOPHOSPHAMIDE [Suspect]
     Indication: DIFFUSE LARGE B-CELL LYMPHOMA
     Dosage: ON DAY 1
     Route: 065
  4. LEUKINE [Suspect]
     Indication: MANTLE CELL LYMPHOMA
     Dosage: ON DAY 9-15; 250 MCG/M2/DAY
     Route: 058
  5. RITUXIMAB [Suspect]
     Indication: DIFFUSE LARGE B-CELL LYMPHOMA
     Dosage: ON DAY 15; AS INFUSION
     Route: 042
  6. VINCRISTINE [Suspect]
     Indication: DIFFUSE LARGE B-CELL LYMPHOMA
     Dosage: ON DAY 1 (MAXIMUM DOSE: 2MG)
     Route: 065
  7. PREDNISONE TAB [Suspect]
     Indication: MANTLE CELL LYMPHOMA
     Dosage: ON DAYS 1-5
     Route: 065
  8. VINCRISTINE [Suspect]
     Indication: MANTLE CELL LYMPHOMA
     Dosage: ON DAY 1 (MAXIMUM DOSE: 2MG)
     Route: 065
  9. PREDNISONE TAB [Suspect]
     Indication: DIFFUSE LARGE B-CELL LYMPHOMA
     Dosage: ON DAYS 1-5
     Route: 065
  10. DOXORUBICIN HCL [Suspect]
     Indication: MANTLE CELL LYMPHOMA
     Dosage: ON DAY 1
     Route: 042
  11. LEUKINE [Suspect]
     Indication: DIFFUSE LARGE B-CELL LYMPHOMA
     Dosage: ON DAY 9-15; 250 MCG/M2/DAY
     Route: 058
  12. RITUXIMAB [Suspect]
     Indication: MANTLE CELL LYMPHOMA
     Dosage: ON DAY 15; AS INFUSION
     Route: 042

REACTIONS (22)
  - LEUKOPENIA [None]
  - FEBRILE NEUTROPENIA [None]
  - INAPPROPRIATE ANTIDIURETIC HORMONE SECRETION [None]
  - MANTLE CELL LYMPHOMA RECURRENT [None]
  - ANAEMIA [None]
  - INFECTION [None]
  - RECTAL HAEMORRHAGE [None]
  - SEPSIS [None]
  - ASTHENIA [None]
  - CONSTIPATION [None]
  - ATRIAL FIBRILLATION [None]
  - CARDIAC DISORDER [None]
  - HOSPITALISATION [None]
  - SYNCOPE [None]
  - PANCYTOPENIA [None]
  - PNEUMONIA [None]
  - DEHYDRATION [None]
  - CARDIAC FAILURE CONGESTIVE [None]
  - THROMBOCYTOPENIA [None]
  - DEEP VEIN THROMBOSIS [None]
  - GRANULOCYTOPENIA [None]
  - EMBOLISM [None]
